FAERS Safety Report 15234920 (Version 1)
Quarter: 2018Q4

REPORT INFORMATION
  Report Type: Spontaneous
  Country: US (occurrence: US)
  Receive Date: 20180803
  Receipt Date: 20180803
  Transmission Date: 20190204
  Serious: Yes (Other)
  Sender: FDA-Public Use
  Company Number: US-ACCORD-065022

PATIENT
  Age: 42 Year
  Sex: Female
  Weight: 65.77 kg

DRUGS (1)
  1. DOCETAXEL ACOORD [Suspect]
     Active Substance: DOCETAXEL
     Indication: INVASIVE LOBULAR BREAST CARCINOMA
     Dosage: NUMBER OF CYCLES: 06
     Dates: start: 201506, end: 20150924

REACTIONS (1)
  - Alopecia [Not Recovered/Not Resolved]

NARRATIVE: CASE EVENT DATE: 20160424
